FAERS Safety Report 5145123-7 (Version None)
Quarter: 2006Q4

REPORT INFORMATION
  Report Type: 
  Country: None (occurrence: None)
  Receive Date: 20061107
  Receipt Date: 20061030
  Transmission Date: 20070319
  Serious: Yes (Hospitalization)
  Sender: FDA-Public Use
  Company Number: US-JNJFOC-20061100274

PATIENT
  Age: 57 Year
  Sex: Female
  Weight: 98.43 kg

DRUGS (5)
  1. TOPAMAX [Suspect]
     Route: 048
  2. TOPAMAX [Suspect]
     Route: 048
  3. TOPAMAX [Suspect]
     Indication: CONVULSION PROPHYLAXIS
     Dosage: 150 MG IN THE AM AND 150 MG IN THE PM
     Route: 048
  4. TOPAMAX [Suspect]
     Indication: MIGRAINE PROPHYLAXIS
     Route: 048
  5. ASPIRIN [Concomitant]

REACTIONS (16)
  - ASTHENIA [None]
  - BLINDNESS [None]
  - BLOOD GLUCOSE DECREASED [None]
  - CHEST DISCOMFORT [None]
  - CONVULSION [None]
  - DIZZINESS [None]
  - DYSGEUSIA [None]
  - LOSS OF CONSCIOUSNESS [None]
  - MEMORY IMPAIRMENT [None]
  - METABOLIC ACIDOSIS [None]
  - NEPHROLITHIASIS [None]
  - PARAESTHESIA [None]
  - SYNCOPE [None]
  - THERAPEUTIC RESPONSE DECREASED [None]
  - THERAPEUTIC RESPONSE UNEXPECTED [None]
  - WEIGHT DECREASED [None]
